FAERS Safety Report 5775029-1 (Version None)
Quarter: 2008Q2

REPORT INFORMATION
  Report Type: 
  Country: None (occurrence: None)
  Receive Date: 20080617
  Receipt Date: 20080617
  Transmission Date: 20081010
  Serious: No
  Sender: FDA-Public Use
  Company Number: None

PATIENT
  Age: 82 Year
  Sex: Female
  Weight: 78 kg

DRUGS (15)
  1. HEPARIN [Suspect]
     Indication: PROPHYLAXIS
     Dosage: VAR. CONT. INFUSION
     Route: 042
     Dates: start: 20080406, end: 20080419
  2. CHLORHEXIDINE GLUCONATE [Concomitant]
  3. DOCUSATE [Concomitant]
  4. LANSOPRAZOLE [Concomitant]
  5. LEVOFLOXACIN [Concomitant]
  6. MGO [Concomitant]
  7. METOPROLOL [Concomitant]
  8. METRONIDAZOLE [Concomitant]
  9. MIDODRINE [Concomitant]
  10. SENNA [Concomitant]
  11. TIMOLOL OPHTH DROPS [Concomitant]
  12. VANCOMYCIN HCL [Concomitant]
  13. AMIODARONE HCL [Concomitant]
  14. MILRINONE LACTATE [Concomitant]
  15. PHENYLEPHINE [Concomitant]

REACTIONS (1)
  - HEPARIN-INDUCED THROMBOCYTOPENIA [None]
